FAERS Safety Report 4753512-5 (Version None)
Quarter: 2005Q3

REPORT INFORMATION
  Report Type: 
  Country: None (occurrence: None)
  Receive Date: 20050824
  Receipt Date: 20050811
  Transmission Date: 20060218
  Serious: Yes (Death, Hospitalization)
  Sender: FDA-Public Use
  Company Number: 2005AL003172

PATIENT
  Age: 80 Year
  Sex: Female

DRUGS (1)
  1. KADIAN [Suspect]
     Dates: start: 20050712, end: 20050713

REACTIONS (8)
  - ANOREXIA [None]
  - CONFUSIONAL STATE [None]
  - DIVERTICULITIS OESOPHAGEAL [None]
  - DYSPNOEA [None]
  - FLUID INTAKE REDUCED [None]
  - HALLUCINATION [None]
  - HALLUCINATION, VISUAL [None]
  - NAUSEA [None]
